FAERS Safety Report 25046871 (Version 1)
Quarter: 2025Q1

REPORT INFORMATION
  Report Type: Report from Study
  Country: GB (occurrence: GB)
  Receive Date: 20250306
  Receipt Date: 20250306
  Transmission Date: 20250409
  Serious: Yes (Other)
  Sender: TEVA
  Company Number: GB-TEVA-VS-3303965

PATIENT
  Age: 36 Year
  Sex: Male

DRUGS (1)
  1. COPAXONE [Suspect]
     Active Substance: GLATIRAMER ACETATE
     Indication: Multiple sclerosis
     Route: 065
     Dates: start: 20240212

REACTIONS (6)
  - Confusional state [Unknown]
  - Dizziness [Unknown]
  - Weight decreased [Unknown]
  - Injection site pain [Unknown]
  - Tooth disorder [Unknown]
  - Ear infection [Unknown]

NARRATIVE: CASE EVENT DATE: 20240101
